FAERS Safety Report 9393291 (Version 1)
Quarter: 2013Q3

REPORT INFORMATION
  Report Type: Spontaneous
  Country: US (occurrence: US)
  Receive Date: 20130710
  Receipt Date: 20130710
  Transmission Date: 20140515
  Serious: No
  Sender: FDA-Public Use
  Company Number: US-009507513-1307USA003351

PATIENT
  Sex: Female

DRUGS (2)
  1. DULERA [Suspect]
     Indication: ASTHMA
     Dosage: 2 PUFFS, BID, ORAL INHALED
     Route: 055
     Dates: start: 20130603
  2. ALBUTEROL [Concomitant]

REACTIONS (4)
  - Chest discomfort [Recovering/Resolving]
  - Asthma [Recovering/Resolving]
  - Drug dose omission [Unknown]
  - Product quality issue [Unknown]
